FAERS Safety Report 21182871 (Version 2)
Quarter: 2022Q4

REPORT INFORMATION
  Report Type: Report from Study
  Country: EG (occurrence: EG)
  Receive Date: 20220808
  Receipt Date: 20221017
  Transmission Date: 20230113
  Serious: Yes (Other)
  Sender: FDA-Public Use
  Company Number: EG-NOVARTISPH-NVSC2022EG177276

PATIENT
  Age: 9 Year
  Sex: Female

DRUGS (8)
  1. OMNITROPE [Suspect]
     Active Substance: SOMATROPIN
     Indication: Growth hormone deficiency
     Dosage: UNK (STRENGTH 5)
     Route: 058
     Dates: start: 202009
  2. OMNITROPE [Suspect]
     Active Substance: SOMATROPIN
     Dosage: 1.1 MG, QD (STRENGTH 10 MG/1.5ML)
     Route: 058
     Dates: start: 20210926
  3. OMNITROPE [Suspect]
     Active Substance: SOMATROPIN
     Dosage: 1.1 MG, QD (STRENGTH 5 MG/ 1,5 ML)
     Route: 058
     Dates: start: 20200926, end: 202109
  4. OMNITROPE [Suspect]
     Active Substance: SOMATROPIN
     Dosage: 1.1 MG, QD (STRENGTH 10 MG/ 1,5 ML)
     Route: 058
     Dates: start: 202109, end: 202209
  5. OMNITROPE [Suspect]
     Active Substance: SOMATROPIN
     Dosage: 1.1 MG, QD (STRENGTH 5 MG/ 1,5 ML)
     Route: 058
     Dates: start: 20221010
  6. OCTOZINC [Concomitant]
     Indication: Malnutrition
     Dosage: 1 DOSAGE FORM, QD
     Route: 065
     Dates: start: 202009
  7. VIDROP [Concomitant]
     Indication: Malnutrition
     Dosage: 1 DROPPER, QD
     Route: 065
     Dates: start: 202009
  8. FEROGLOBIN [Concomitant]
     Indication: Malnutrition
     Dosage: 5 CM, QD
     Route: 065
     Dates: start: 202009

REACTIONS (6)
  - Epiphyses premature fusion [Not Recovered/Not Resolved]
  - Product availability issue [Not Recovered/Not Resolved]
  - Prescription drug used without a prescription [Recovered/Resolved]
  - Expired device used [Not Recovered/Not Resolved]
  - Incorrect dose administered [Not Recovered/Not Resolved]
  - Device leakage [Not Recovered/Not Resolved]

NARRATIVE: CASE EVENT DATE: 20210901
